FAERS Safety Report 7649416-0 (Version None)
Quarter: 2011Q3

REPORT INFORMATION
  Report Type: 
  Country: None (occurrence: None)
  Receive Date: 20110727
  Receipt Date: 20110714
  Transmission Date: 20111222
  Serious: Yes (Hospitalization, Other)
  Sender: FDA-Public Use
  Company Number: 2011SP033289

PATIENT
  Sex: Female

DRUGS (2)
  1. ZEGERID OTC [Suspect]
     Dosage: ;QOD; PO
     Route: 048
     Dates: start: 20110708
  2. PRILOSEC [Suspect]
     Dates: start: 20110709

REACTIONS (3)
  - DISCOMFORT [None]
  - RASH GENERALISED [None]
  - PAIN [None]
